FAERS Safety Report 5802635-8 (Version None)
Quarter: 2008Q3

REPORT INFORMATION
  Report Type: 
  Country: None (occurrence: None)
  Receive Date: 20080703
  Receipt Date: 20080623
  Transmission Date: 20090109
  Serious: Yes (Hospitalization)
  Sender: FDA-Public Use
  Company Number: E2090-00487-SPO-JP

PATIENT
  Age: 71 Year
  Sex: Female
  Weight: 45.8 kg

DRUGS (4)
  1. ZONISAMIDE [Suspect]
     Indication: TRIGEMINAL NEURALGIA
     Dosage: 900 MG, ORAL
     Route: 048
     Dates: start: 20080527, end: 20080610
  2. AMITRIPTYLINE HCL [Concomitant]
  3. MEILAX (ETHYL LOFLAZEPATE) [Concomitant]
  4. SOLANAX (ALPRAZOLAM) [Concomitant]

REACTIONS (7)
  - AGRANULOCYTOSIS [None]
  - CANDIDIASIS [None]
  - HAEMOLYSIS [None]
  - NEUTROPHIL COUNT DECREASED [None]
  - STOMATITIS [None]
  - STREPTOCOCCAL INFECTION [None]
  - THROMBOCYTOPENIA [None]
